FAERS Safety Report 6286958-7 (Version None)
Quarter: 2009Q3

REPORT INFORMATION
  Report Type: 
  Country: None (occurrence: None)
  Receive Date: 20090728
  Receipt Date: 20090723
  Transmission Date: 20100115
  Serious: Yes (Hospitalization)
  Sender: FDA-Public Use
  Company Number: DE-WYE-G02612408

PATIENT
  Age: 32 Year
  Sex: Female

DRUGS (1)
  1. TREVILOR RETARD [Suspect]
     Route: 048
     Dates: end: 20080101

REACTIONS (2)
  - DRUG EXPOSURE DURING PREGNANCY [None]
  - NONSPECIFIC REACTION [None]
